FAERS Safety Report 9397737 (Version 1)
Quarter: 2013Q3

REPORT INFORMATION
  Report Type: Spontaneous
  Country: GB (occurrence: GB)
  Receive Date: 20130712
  Receipt Date: 20130712
  Transmission Date: 20140515
  Serious: Yes (Death, Hospitalization)
  Sender: FDA-Public Use
  Company Number: GB-MYLANLABS-2013S1014701

PATIENT
  Age: 63 Year
  Sex: Female

DRUGS (3)
  1. CARBOPLATIN [Suspect]
     Indication: OVARIAN CANCER METASTATIC
     Dosage: 3 WEEKLY (AUC5)
     Route: 065
  2. PACLITAXEL [Suspect]
     Indication: OVARIAN CANCER METASTATIC
     Dosage: 75 MG/M2 WEEKLY
     Route: 065
  3. HEPARIN LMW [Concomitant]
     Indication: PULMONARY EMBOLISM
     Route: 065

REACTIONS (3)
  - Tumour lysis syndrome [Not Recovered/Not Resolved]
  - Multi-organ failure [Fatal]
  - Metabolic acidosis [Unknown]
